FAERS Safety Report 16090544 (Version 3)
Quarter: 2019Q2

REPORT INFORMATION
  Report Type: Spontaneous
  Country: CA (occurrence: CA)
  Receive Date: 20190319
  Receipt Date: 20190513
  Transmission Date: 20190711
  Serious: Yes (Other)
  Sender: FDA-Public Use
  Company Number: CA-PFIZER INC-2019100871

PATIENT
  Age: 30 Year
  Sex: Female

DRUGS (1)
  1. PROSTIN E2 [Suspect]
     Active Substance: DINOPROSTONE
     Indication: LABOUR INDUCTION
     Dosage: 2 MG, UNK
     Route: 067
     Dates: start: 20190227, end: 20190227

REACTIONS (2)
  - Premature separation of placenta [Unknown]
  - Uterine hypertonus [Unknown]
